FAERS Safety Report 15591567 (Version 5)
Quarter: 2018Q4

REPORT INFORMATION
  Report Type: Spontaneous
  Country: BE (occurrence: BE)
  Receive Date: 20181107
  Receipt Date: 20181204
  Transmission Date: 20190205
  Serious: Yes (Hospitalization)
  Sender: FDA-Public Use
  Company Number: BE-TEVA-2018-BE-967464

PATIENT
  Age: 79 Year
  Sex: Male
  Weight: 70.8 kg

DRUGS (1)
  1. CISPLATINE TEVA [Suspect]
     Active Substance: CISPLATIN
     Indication: MESOTHELIOMA
     Dosage: 10MG (BATCH 17G19KE) AND 100MG (BATCH 18A02LB)
     Route: 042
     Dates: start: 20181019

REACTIONS (6)
  - Pruritus [Unknown]
  - Erythema [Unknown]
  - Back pain [Unknown]
  - Pleural thickening [Unknown]
  - Pain [Unknown]
  - Pleural effusion [Unknown]

NARRATIVE: CASE EVENT DATE: 20181019
